FAERS Safety Report 6434177-3 (Version None)
Quarter: 2009Q4

REPORT INFORMATION
  Report Type: 
  Country: None (occurrence: None)
  Receive Date: 20091109
  Receipt Date: 20091109
  Transmission Date: 20100525
  Serious: No
  Sender: FDA-Public Use
  Company Number: None

PATIENT
  Age: 49 Year
  Sex: Female
  Weight: 55.7924 kg

DRUGS (3)
  1. CITALOPRAM HYDROBROMIDE [Suspect]
     Indication: ANXIETY
     Dosage: ONE PO QD PO SUMMER 2009
     Route: 048
  2. CITALOPRAM HYDROBROMIDE [Suspect]
     Indication: DEPRESSION
     Dosage: ONE PO QD PO SUMMER 2009
     Route: 048
  3. CELEXA [Suspect]

REACTIONS (6)
  - ABDOMINAL DISCOMFORT [None]
  - CONSTIPATION [None]
  - DRUG INEFFECTIVE [None]
  - INSOMNIA [None]
  - IRRITABILITY [None]
  - PRODUCT SUBSTITUTION ISSUE [None]
